FAERS Safety Report 20002495 (Version 1)
Quarter: 2021Q4

REPORT INFORMATION
  Report Type: Spontaneous
  Country: US (occurrence: US)
  Receive Date: 20211027
  Receipt Date: 20211027
  Transmission Date: 20220303
  Serious: Yes (Life-Threatening, Hospitalization)
  Sender: FDA-Public Use
  Company Number: US-MYLANLABS-2021M1076481

PATIENT
  Age: 24 Year
  Sex: Male

DRUGS (12)
  1. ALBUTEROL [Suspect]
     Active Substance: ALBUTEROL
     Indication: Status asthmaticus
     Dosage: NEBULISED
     Route: 045
  2. FENTANYL [Suspect]
     Active Substance: FENTANYL
     Indication: Sedation
     Dosage: MAXIMUM DOSE
     Route: 065
  3. KETAMINE [Suspect]
     Active Substance: KETAMINE
     Indication: Sedation
     Dosage: 140 MILLIGRAM
     Route: 042
  4. PROPOFOL [Suspect]
     Active Substance: PROPOFOL
     Indication: Sedation
     Dosage: UNK
     Route: 065
  5. METHYLPREDNISOLONE [Concomitant]
     Active Substance: METHYLPREDNISOLONE
     Indication: Status asthmaticus
     Dosage: 125 MILLIGRAM
     Route: 042
  6. MAGNESIUM SULFATE [Concomitant]
     Active Substance: MAGNESIUM SULFATE
     Indication: Status asthmaticus
     Dosage: 2 MILLIGRAM
     Route: 042
  7. AMPICILLIN AND SULBACTAM [Concomitant]
     Active Substance: AMPICILLIN SODIUM\SULBACTAM SODIUM
     Indication: Status asthmaticus
     Dosage: 1.5 GRAM
     Route: 042
  8. SODIUM CHLORIDE [Concomitant]
     Active Substance: SODIUM CHLORIDE
     Indication: Status asthmaticus
     Dosage: 1 LITER
     Route: 040
  9. SODIUM CHLORIDE [Concomitant]
     Active Substance: SODIUM CHLORIDE
     Indication: Lactic acidosis
     Dosage: 2 LITER
     Route: 040
  10. SUCCINYLCHOLINE [Concomitant]
     Active Substance: SUCCINYLCHOLINE
     Indication: Endotracheal intubation
     Dosage: 100 MILLIGRAM
     Route: 042
  11. VANCOMYCIN [Concomitant]
     Active Substance: VANCOMYCIN
     Indication: Endocarditis
     Dosage: UNK
     Route: 065
  12. PIPERACILLIN SODIUM\TAZOBACTAM SODIUM [Concomitant]
     Active Substance: PIPERACILLIN SODIUM\TAZOBACTAM SODIUM
     Indication: Endocarditis
     Dosage: UNK
     Route: 065

REACTIONS (6)
  - Lactic acidosis [Recovering/Resolving]
  - Drug withdrawal syndrome [Recovering/Resolving]
  - Symptom masked [Recovering/Resolving]
  - Respiratory acidosis [Recovering/Resolving]
  - Status asthmaticus [Recovering/Resolving]
  - Condition aggravated [Recovering/Resolving]
